FAERS Safety Report 20020703 (Version 1)
Quarter: 2021Q4

REPORT INFORMATION
  Report Type: Report from Study
  Country: MX (occurrence: MX)
  Receive Date: 20211101
  Receipt Date: 20211101
  Transmission Date: 20220304
  Serious: Yes (Other)
  Sender: FDA-Public Use
  Company Number: MX-NOVARTISPH-NVSC2019MX064150

PATIENT
  Sex: Male
  Weight: 70 kg

DRUGS (2)
  1. METFORMIN HYDROCHLORIDE\VILDAGLIPTIN [Suspect]
     Active Substance: METFORMIN HYDROCHLORIDE\VILDAGLIPTIN
     Indication: Diabetes mellitus
     Dosage: 1 DF (METFORMIN 500MG, VILDAGLIPTIN 50MG), BID (STARTED APPROXIMATELY 15 YEARS AGO)
     Route: 048
  2. METFORMIN HYDROCHLORIDE\VILDAGLIPTIN [Suspect]
     Active Substance: METFORMIN HYDROCHLORIDE\VILDAGLIPTIN
     Dosage: 50/850 (UNITS NOT PROVIDED) (STARTED AROUND 10 YEARS AGO)
     Route: 048

REACTIONS (1)
  - Deafness [Unknown]
